FAERS Safety Report 15020668 (Version 2)
Quarter: 2018Q2

REPORT INFORMATION
  Report Type: Report from Study
  Country: IT (occurrence: IT)
  Receive Date: 20180618
  Receipt Date: 20180627
  Transmission Date: 20180711
  Serious: Yes (Other)
  Sender: FDA-Public Use
  Company Number: IT-TEVA-2018-IT-909455

PATIENT
  Age: 46 Year
  Sex: Male

DRUGS (1)
  1. LORAZEPAM. [Suspect]
     Active Substance: LORAZEPAM
     Dosage: HIGH DOSE
     Route: 048

REACTIONS (3)
  - Alanine aminotransferase increased [Unknown]
  - Drug abuse [Unknown]
  - Drug dependence [Unknown]
